FAERS Safety Report 4605255-6 (Version None)
Quarter: 2005Q1

REPORT INFORMATION
  Report Type: 
  Country: None (occurrence: None)
  Receive Date: 20050310
  Receipt Date: 20040302
  Transmission Date: 20050727
  Serious: No
  Sender: FDA-Public Use
  Company Number: US-BRISTOL-MYERS SQUIBB COMPANY-12526612

PATIENT
  Age: 47 Year
  Sex: Female

DRUGS (5)
  1. MONISTAT [Suspect]
     Indication: VAGINAL MYCOSIS
     Route: 067
     Dates: start: 20040228, end: 20040228
  2. BLOOD PRESSURE MEDICATION [Concomitant]
  3. HORMONE THERAPY [Concomitant]
  4. ANTIDEPRESSANT [Concomitant]
  5. VITAMINS [Concomitant]

REACTIONS (1)
  - HYPOAESTHESIA [None]
